FAERS Safety Report 7725874-8 (Version None)
Quarter: 2011Q3

REPORT INFORMATION
  Report Type: 
  Country: None (occurrence: None)
  Receive Date: 20110902
  Receipt Date: 20110830
  Transmission Date: 20111222
  Serious: Yes (Life-Threatening)
  Sender: FDA-Public Use
  Company Number: JP-SANOFI-AVENTIS-2011SA055004

PATIENT
  Age: 63 Year
  Sex: Male
  Weight: 70 kg

DRUGS (3)
  1. OXALIPLATIN [Suspect]
     Indication: COLON CANCER
     Route: 041
     Dates: start: 20100804, end: 20100804
  2. LEUCOVORIN CALCIUM [Suspect]
     Indication: COLON CANCER
     Route: 041
     Dates: start: 20100804, end: 20100804
  3. FLUOROURACIL [Suspect]
     Indication: COLON CANCER
     Dosage: DOSE: PATIENT TOOK 400 MG/M2 BOLUS THEN 2400 MG/M2 AS CONTINOUS INFUSION.
     Dates: start: 20100804, end: 20100804

REACTIONS (1)
  - WOUND DECOMPOSITION [None]
